FAERS Safety Report 9412532 (Version 1)
Quarter: 2013Q3

REPORT INFORMATION
  Report Type: Spontaneous
  Country: TR (occurrence: None)
  Receive Date: 20130712
  Receipt Date: 20130712
  Transmission Date: 20140515
  Serious: Yes (Hospitalization, Other)
  Sender: FDA-Public Use
  Company Number: VAL_02158_2013

PATIENT
  Age: 32 Year
  Sex: Female

DRUGS (2)
  1. METOPROLOL (METOPROLOL-METOPROLOL TARTRATE) [Suspect]
     Indication: PRODUCT USED FOR UNKNOWN INDICATION
     Route: 042
  2. LEVOTHYROXINE [Suspect]
     Indication: PRODUCT USED FOR UNKNOWN INDICATION

REACTIONS (7)
  - Maternal exposure during pregnancy [None]
  - Pregnancy [None]
  - Supraventricular tachycardia [None]
  - Chest pain [None]
  - Blood pressure decreased [None]
  - Altered state of consciousness [None]
  - No therapeutic response [None]
